FAERS Safety Report 20006526 (Version 1)
Quarter: 2021Q4

REPORT INFORMATION
  Report Type: Spontaneous
  Country: US (occurrence: US)
  Receive Date: 20211028
  Receipt Date: 20211028
  Transmission Date: 20220303
  Serious: No
  Sender: FDA-Public Use
  Company Number: None

PATIENT
  Age: 74 Year
  Sex: Female
  Weight: 51.75 kg

DRUGS (8)
  1. LEUKERAN [Suspect]
     Active Substance: CHLORAMBUCIL
     Indication: Chronic lymphocytic leukaemia
     Dosage: ?          OTHER FREQUENCY:EVERY 2 WEEKS;
     Route: 048
     Dates: start: 20210720
  2. Asmanex 220mcg/inh [Concomitant]
  3. Vitamin D 2000IU [Concomitant]
  4. REFRESH SOLUTION NOS [Concomitant]
     Active Substance: CARBOXYMETHYLCELLULOSE SODIUM\GLYCERIN
  5. LACTASE [Concomitant]
     Active Substance: LACTASE
  6. Ayr Gel [Concomitant]
  7. Ayr Spray [Concomitant]
  8. LISTERINE ANTISEPTIC MOUTHWASH [Concomitant]
     Active Substance: EUCALYPTOL\MENTHOL\METHYL SALICYLATE\THYMOL

REACTIONS (2)
  - Fatigue [None]
  - Somnolence [None]

NARRATIVE: CASE EVENT DATE: 20211027
